FAERS Safety Report 17556707 (Version 1)
Quarter: 2020Q1

REPORT INFORMATION
  Report Type: Spontaneous
  Country: US (occurrence: US)
  Receive Date: 20200318
  Receipt Date: 20200318
  Transmission Date: 20200409
  Serious: Yes (Other)
  Sender: FDA-Public Use
  Company Number: None

PATIENT
  Age: 29 Year
  Weight: 76.05 kg

DRUGS (3)
  1. BUPROPION XR 450 GM [Concomitant]
  2. DEXTROAMPHETAMINE 10MG [Concomitant]
     Active Substance: DEXTROAMPHETAMINE
  3. DEXTROAMPHETAMINE 10MG TABLETS [Suspect]
     Active Substance: DEXTROAMPHETAMINE SULFATE
     Indication: ATTENTION DEFICIT/HYPERACTIVITY DISORDER
     Dosage: ?          QUANTITY:1 TABLET(S);?
     Route: 048

REACTIONS (5)
  - Pain in extremity [None]
  - Product substitution issue [None]
  - Palpitations [None]
  - Chest discomfort [None]
  - Drug ineffective [None]

NARRATIVE: CASE EVENT DATE: 20200301
